FAERS Safety Report 8926962 (Version 1)
Quarter: 2012Q4

REPORT INFORMATION
  Report Type: 
  Country: FR (occurrence: FR)
  Receive Date: 20121127
  Receipt Date: 20121127
  Transmission Date: 20130627
  Serious: Yes (Death, Life-Threatening)
  Sender: FDA-Public Use
  Company Number: FR-ASTRAZENECA-2012SE88771

PATIENT
  Age: 18870 Day
  Sex: Female

DRUGS (13)
  1. INEXIUM [Suspect]
     Route: 042
     Dates: start: 20120926, end: 20121020
  2. BACTRIM [Suspect]
     Dates: end: 201207
  3. BACTRIM [Suspect]
     Route: 065
     Dates: start: 20120926, end: 20121006
  4. ROVAMYCINE [Concomitant]
     Dates: end: 20121020
  5. NEORAL [Concomitant]
     Dates: end: 20121020
  6. PAROXETIN [Concomitant]
     Dates: end: 20121020
  7. HYDROQUINONE [Concomitant]
     Dates: end: 20121020
  8. CICLOSPORIN [Concomitant]
     Dates: start: 20120925, end: 20121004
  9. ZECLAR [Concomitant]
     Dates: start: 20120926, end: 20121004
  10. UNFRACTIONATED HEPARIN [Concomitant]
     Dates: start: 20120927, end: 20121006
  11. CYMEVAN [Concomitant]
     Dates: start: 20120928, end: 20121004
  12. SOLUMEDROL [Concomitant]
     Dates: start: 20121002, end: 20121020
  13. ORGARAN [Concomitant]
     Dates: start: 20121010, end: 20121020

REACTIONS (7)
  - Anaemia [Fatal]
  - Thrombocytopenia [Fatal]
  - Drug reaction with eosinophilia and systemic symptoms [Fatal]
  - Drug reaction with eosinophilia and systemic symptoms [Fatal]
  - Cerebral haemorrhage [Unknown]
  - Brain oedema [Unknown]
  - Eosinophilia [Recovered/Resolved]
